FAERS Safety Report 20068378 (Version 2)
Quarter: 2022Q1

REPORT INFORMATION
  Report Type: Spontaneous
  Country: CO (occurrence: CO)
  Receive Date: 20211115
  Receipt Date: 20220120
  Transmission Date: 20220423
  Serious: Yes (Hospitalization, Other)
  Sender: FDA-Public Use
  Company Number: CO-LUPIN PHARMACEUTICALS INC.-2021-20858

PATIENT
  Age: 54 Year

DRUGS (4)
  1. ESTRADIOL [Suspect]
     Active Substance: ESTRADIOL
     Indication: Hormone therapy
     Dosage: 1 MILLIGRAM
     Route: 065
  2. ESTRADIOL [Suspect]
     Active Substance: ESTRADIOL
     Dosage: 2 MILLIGRAM
     Route: 065
  3. SERTRALINE [Suspect]
     Active Substance: SERTRALINE HYDROCHLORIDE
     Indication: Generalised anxiety disorder
     Dosage: 50 MILLIGRAM, QD
     Route: 065
  4. DROSPIRENONE [Suspect]
     Active Substance: DROSPIRENONE
     Indication: Hormone therapy
     Dosage: 2 MILLIGRAM
     Route: 065

REACTIONS (3)
  - Coronary artery disease [Unknown]
  - Self-medication [Unknown]
  - Drug ineffective [Unknown]
